FAERS Safety Report 9165230 (Version 2)
Quarter: 2013Q2

REPORT INFORMATION
  Report Type: Spontaneous
  Country: US (occurrence: US)
  Receive Date: 20130315
  Receipt Date: 20130403
  Transmission Date: 20140414
  Serious: Yes (Hospitalization, Other)
  Sender: FDA-Public Use
  Company Number: US-ASTELLAS-2011US000284

PATIENT
  Age: 63 Year
  Sex: Male
  Weight: 91 kg

DRUGS (14)
  1. PROGRAF [Suspect]
     Indication: RENAL TRANSPLANT
     Dosage: 0.5 MG, BID
     Route: 048
     Dates: start: 20080904
  2. ACTOS [Concomitant]
     Indication: DIABETES MELLITUS
     Dosage: 45 MG, UID/QD
     Route: 048
     Dates: start: 2000
  3. GLIPIZIDE [Concomitant]
     Indication: DIABETES MELLITUS
     Dosage: 20 MG, UNKNOWN/D
     Route: 048
  4. CELLCEPT [Concomitant]
     Indication: RENAL TRANSPLANT
     Dosage: 500 MG, BID
     Route: 048
     Dates: start: 20080904
  5. PREDNISONE [Concomitant]
     Indication: RENAL TRANSPLANT
     Dosage: 0.5 MG, UID/QD
     Route: 048
     Dates: start: 20080904
  6. METOPROLOL [Concomitant]
     Indication: HEART RATE
     Dosage: 100 MG, UID/QD
     Route: 048
     Dates: start: 1998
  7. TRILIPREX [Concomitant]
     Indication: BLOOD TRIGLYCERIDES
     Dosage: 135 MG, UID/QD
     Route: 048
  8. SIMVASTATIN [Concomitant]
     Indication: BLOOD CHOLESTEROL
     Dosage: 100 MG, UID/QD
     Route: 048
  9. MAGNESIUM OXIDE [Concomitant]
     Indication: RENAL TRANSPLANT
     Dosage: 800 MG, BID
     Route: 048
     Dates: start: 20080904
  10. VITAMIN D [Concomitant]
     Indication: PRODUCT USED FOR UNKNOWN INDICATION
     Dosage: 1000 MG, UID/QD
     Route: 048
     Dates: start: 2004
  11. VITAMIN C [Concomitant]
     Indication: PROMOTION OF WOUND HEALING
     Dosage: 1000 MG, UID/QD
     Route: 048
     Dates: start: 20080904
  12. CALCIUM [Concomitant]
     Indication: BONE DISORDER
     Dosage: 1600 MG, UID/QD
     Route: 048
     Dates: start: 2010
  13. BONIVA [Concomitant]
     Indication: BONE DISORDER
     Dosage: 70 MG, WEEKLY
     Route: 048
     Dates: start: 2010
  14. EPIDURAL BLOCK [Concomitant]
     Indication: INTERVERTEBRAL DISC DISORDER
     Dosage: 1 DF, EVERY 6 MONTHS
     Route: 050

REACTIONS (6)
  - Coronary artery occlusion [Unknown]
  - Decubitus ulcer [Unknown]
  - Infective tenosynovitis [Recovering/Resolving]
  - Osteomyelitis [Recovering/Resolving]
  - Wound infection [Unknown]
  - Pneumonia [Unknown]
